APPROVED DRUG PRODUCT: TECHNETIUM TC 99M MPI MDP
Active Ingredient: TECHNETIUM TC-99M MEDRONATE KIT
Strength: N/A
Dosage Form/Route: INJECTABLE;INJECTION
Application: N018141 | Product #002
Applicant: GE HEALTHCARE
Approved: Jun 12, 1989 | RLD: No | RS: No | Type: DISCN